FAERS Safety Report 10025844 (Version 1)
Quarter: 2014Q1

REPORT INFORMATION
  Report Type: Spontaneous
  Country: CA (occurrence: CA)
  Receive Date: 20140320
  Receipt Date: 20140320
  Transmission Date: 20141002
  Serious: Yes (Hospitalization)
  Sender: FDA-Public Use
  Company Number: CA-B.I. PHARMACEUTICALS,INC./RIDGEFIELD-2014-BI-11558CN

PATIENT
  Age: 78 Year
  Sex: Male

DRUGS (9)
  1. SPIRIVA [Suspect]
     Indication: PRODUCT USED FOR UNKNOWN INDICATION
     Route: 065
  2. ADVAIR [Suspect]
     Indication: PRODUCT USED FOR UNKNOWN INDICATION
     Dosage: DOSE PER APPLICATION: 2.0 DOSAGE FORMS
     Route: 055
  3. INFLUENZA VACCINE [Suspect]
     Indication: PRODUCT USED FOR UNKNOWN INDICATION
     Route: 065
  4. VENTOLIN [Suspect]
     Indication: PRODUCT USED FOR UNKNOWN INDICATION
     Route: 065
  5. FLOMAX CR [Concomitant]
     Route: 065
  6. GLYBURIDE [Concomitant]
     Route: 065
  7. NORVASC [Concomitant]
     Route: 065
  8. RAMIPRIL [Concomitant]
     Route: 065
  9. THEOPHYLLINE [Concomitant]
     Route: 065

REACTIONS (17)
  - Activities of daily living impaired [Unknown]
  - Asthenia [Unknown]
  - Chest pain [Unknown]
  - Colonoscopy [Unknown]
  - Decreased appetite [Unknown]
  - Chronic obstructive pulmonary disease [Unknown]
  - Dehydration [Unknown]
  - Diarrhoea [Unknown]
  - Dyspnoea exertional [Unknown]
  - Fall [Unknown]
  - Lower respiratory tract infection [Unknown]
  - Muscle strain [Unknown]
  - Nasopharyngitis [Unknown]
  - Polypectomy [Unknown]
  - Urinary tract infection [Unknown]
  - Vertigo [Unknown]
  - Weight decreased [Unknown]
